FAERS Safety Report 17025686 (Version 5)
Quarter: 2021Q2

REPORT INFORMATION
  Report Type: Spontaneous
  Country: US (occurrence: US)
  Receive Date: 20191113
  Receipt Date: 20210426
  Transmission Date: 20210716
  Serious: Yes (Hospitalization, Other)
  Sender: FDA-Public Use
  Company Number: US-PFIZER INC-2019486052

PATIENT
  Age: 56 Year
  Sex: Male
  Weight: 113 kg

DRUGS (1)
  1. LYRICA [Suspect]
     Active Substance: PREGABALIN
     Indication: NEUROPATHY PERIPHERAL
     Dosage: 150 MG, TWICE A DAY
     Dates: start: 2014

REACTIONS (7)
  - Speech disorder [Recovered/Resolved]
  - Nephropathy [Unknown]
  - Bradykinesia [Unknown]
  - Cerebrovascular accident [Unknown]
  - Disease recurrence [Unknown]
  - Dysgraphia [Unknown]
  - Neuropathy peripheral [Recovered/Resolved]

NARRATIVE: CASE EVENT DATE: 2014
